FAERS Safety Report 13997909 (Version 1)
Quarter: 2017Q3

REPORT INFORMATION
  Report Type: Spontaneous
  Country: US (occurrence: US)
  Receive Date: 20170921
  Receipt Date: 20170921
  Transmission Date: 20171128
  Serious: Yes (Life-Threatening, Hospitalization)
  Sender: FDA-Public Use
  Company Number: None

PATIENT

DRUGS (1)
  1. TRIAMCINOLONE [Suspect]
     Active Substance: TRIAMCINOLONE
     Indication: RASH
     Dosage: EVERY 4 HOURS 1 TOP OINT?
     Route: 061
     Dates: start: 20170914, end: 20170915

REACTIONS (11)
  - Abdominal pain upper [None]
  - Headache [None]
  - Dysphagia [None]
  - Breath odour [None]
  - Dizziness [None]
  - Diarrhoea [None]
  - Throat irritation [None]
  - Photopsia [None]
  - Rash [None]
  - Skin burning sensation [None]
  - Ear discomfort [None]

NARRATIVE: CASE EVENT DATE: 20170914
